FAERS Safety Report 6010119-X (Version None)
Quarter: 2008Q4

REPORT INFORMATION
  Report Type: 
  Country: None (occurrence: None)
  Receive Date: 20081216
  Receipt Date: 20081204
  Transmission Date: 20090506
  Serious: Yes (Other)
  Sender: FDA-Public Use
  Company Number: 2008SP024865

PATIENT
  Age: 60 Year
  Sex: Female

DRUGS (8)
  1. DIAFUSOR (GLYCERYL TRINITRATE) (GLYCERYL TRINITRATE) [Suspect]
     Indication: DRUG USE FOR UNKNOWN INDICATION
     Dosage: ; CUT
     Route: 003
  2. PRAVASTATIN [Suspect]
     Indication: DRUG USE FOR UNKNOWN INDICATION
  3. CORDARONE [Suspect]
     Indication: DRUG USE FOR UNKNOWN INDICATION
     Dosage: 200 MG;
  4. LASIX [Suspect]
     Indication: DRUG USE FOR UNKNOWN INDICATION
     Dosage: 500 MG;
  5. AMLODIPINE BESYLATE [Suspect]
     Indication: DRUG USE FOR UNKNOWN INDICATION
     Dosage: 5 MG;
  6. ASPEGIC 1000 [Suspect]
     Indication: CORONARY ARTERY DISEASE
     Dosage: 250 ;
     Dates: start: 20030701
  7. MOPRAL [Concomitant]
  8. ATARAX [Concomitant]

REACTIONS (4)
  - CYANOSIS [None]
  - EOSINOPHILIA [None]
  - FAT EMBOLISM [None]
  - RETINAL VASCULAR DISORDER [None]
